FAERS Safety Report 6040771-4 (Version None)
Quarter: 2009Q1

REPORT INFORMATION
  Report Type: 
  Country: None (occurrence: None)
  Receive Date: 20090116
  Receipt Date: 20080522
  Transmission Date: 20090719
  Serious: No
  Sender: FDA-Public Use
  Company Number: US-BRISTOL-MYERS SQUIBB COMPANY-14201347

PATIENT
  Age: 1 Decade
  Sex: Female

DRUGS (3)
  1. ABILIFY [Suspect]
     Indication: SCHIZOPHRENIA
     Dosage: TITRATED FROM 5MG TO 30MG OVER 6 WEEKS
  2. ABILIFY [Suspect]
     Indication: BIPOLAR DISORDER
     Dosage: TITRATED FROM 5MG TO 30MG OVER 6 WEEKS
  3. LAMICTAL [Concomitant]

REACTIONS (1)
  - VISION BLURRED [None]
